FAERS Safety Report 13159339 (Version 3)
Quarter: 2017Q3

REPORT INFORMATION
  Report Type: Spontaneous
  Country: US (occurrence: US)
  Receive Date: 20170127
  Receipt Date: 20170728
  Transmission Date: 20171127
  Serious: No
  Sender: FDA-Public Use
  Company Number: US-AKRIMAX-TIR-2016-1364

PATIENT
  Age: 29 Year
  Sex: Male
  Weight: 54.48 kg

DRUGS (1)
  1. TIROSINT [Suspect]
     Active Substance: LEVOTHYROXINE SODIUM
     Indication: THYROID CANCER
     Dosage: ONCE DAILY
     Route: 048
     Dates: start: 2011

REACTIONS (8)
  - Blood test abnormal [Unknown]
  - Product measured potency issue [Unknown]
  - Sluggishness [Unknown]
  - Thyroxine decreased [Unknown]
  - Drug ineffective [Unknown]
  - Weight increased [Unknown]
  - Disturbance in attention [Unknown]
  - Blood thyroid stimulating hormone increased [Not Recovered/Not Resolved]

NARRATIVE: CASE EVENT DATE: 201612
